FAERS Safety Report 10419869 (Version 1)
Quarter: 2014Q2

REPORT INFORMATION
  Report Type: Spontaneous
  Country: US (occurrence: None)
  Receive Date: 20140627
  Receipt Date: 20140627
  Transmission Date: 20141212
  Serious: Yes (Other)
  Sender: FDA-Public Use
  Company Number: PHEH2014US003350

PATIENT
  Age: 64 Year
  Sex: Female

DRUGS (7)
  1. HYDROCHLOROTHIAZIDE, VALSARTAN (VALSARTAN, HYDROCHLOROTHIAZIDE) UNKNOWN, 320/25MG [Suspect]
     Indication: HYPERTENSION
     Dosage: UNK (VALS 320MG HCTZ 25MG) DAILY, ORAL
     Route: 048
     Dates: start: 20140127
  2. BYSTOLIC (NEBIVOLOL HYDROCHLORIDE) [Concomitant]
  3. METFORMIN [Concomitant]
  4. VENTOLIN (GUAIFENESIN, SALBUTAMOL SULFATE) [Concomitant]
  5. SYMBICORT (BUDESONIDE, FORMOTEROL FUMARATE) [Concomitant]
  6. LOVASTATIN [Concomitant]
  7. OMEGA 3 (FISH OIL) [Concomitant]

REACTIONS (3)
  - Drug intolerance [None]
  - Tinnitus [None]
  - Drug ineffective [None]
